FAERS Safety Report 4944397-2 (Version None)
Quarter: 2006Q1

REPORT INFORMATION
  Report Type: 
  Country: None (occurrence: None)
  Receive Date: 20060315
  Receipt Date: 20060306
  Transmission Date: 20060701
  Serious: Yes (Death)
  Sender: FDA-Public Use
  Company Number: US-BRISTOL-MYERS SQUIBB COMPANY-13304258

PATIENT
  Sex: Female

DRUGS (1)
  1. MEGACE [Suspect]

REACTIONS (1)
  - DEATH [None]
